FAERS Safety Report 9099604 (Version 2)
Quarter: 2013Q1

REPORT INFORMATION
  Report Type: Spontaneous
  Country: US (occurrence: US)
  Receive Date: 20130214
  Receipt Date: 20130314
  Transmission Date: 20140127
  Serious: No
  Sender: FDA-Public Use
  Company Number: US-PFIZER INC-2013053413

PATIENT
  Age: 60 Year
  Sex: Female

DRUGS (15)
  1. GABAPENTIN [Suspect]
     Dosage: 400 MG, 4X/DAY
  2. NEURONTIN [Suspect]
     Dosage: UNK
  3. ZOLOFT [Suspect]
     Indication: DEPRESSION
     Dosage: UNK
  4. DAYPRO [Suspect]
     Dosage: UNK
  5. OXYCONTIN [Suspect]
     Dosage: 60 MG, 2X/DAY
  6. VICODIN [Suspect]
     Indication: BREAKTHROUGH PAIN
     Dosage: UNK
  7. ULTRAM [Concomitant]
     Dosage: UNK
  8. REGLAN [Concomitant]
     Dosage: UNK
  9. DEMADEX [Concomitant]
     Dosage: UNK
  10. LIDODERM PATCH [Concomitant]
     Dosage: UNK
  11. IMITREX [Concomitant]
     Indication: MIGRAINE
     Dosage: UNK
  12. NEXIUM [Concomitant]
     Indication: GASTRITIS
     Dosage: UNK
  13. BACLOFEN [Concomitant]
     Indication: MUSCLE SPASMS
     Dosage: UNK
  14. AMITRIPTYLINE [Concomitant]
     Indication: MIGRAINE
     Dosage: UNK
  15. TOPAMAX [Concomitant]
     Indication: MIGRAINE
     Dosage: UNK

REACTIONS (6)
  - Pain [Unknown]
  - Drug ineffective [Unknown]
  - Dependence [Unknown]
  - Thinking abnormal [Unknown]
  - Abdominal discomfort [Unknown]
  - Musculoskeletal discomfort [Unknown]
